FAERS Safety Report 9367644 (Version 1)
Quarter: 2013Q2

REPORT INFORMATION
  Report Type: Report from Study
  Country: US (occurrence: US)
  Receive Date: 20130625
  Receipt Date: 20130625
  Transmission Date: 20140414
  Serious: Yes (Other)
  Sender: FDA-Public Use
  Company Number: US-ABBOTT-13P-163-1106652-00

PATIENT
  Age: 0 Day
  Sex: Male

DRUGS (1)
  1. HUMIRA [Suspect]
     Indication: PSORIATIC ARTHROPATHY
     Dates: start: 201204

REACTIONS (4)
  - Nasal disorder [Recovering/Resolving]
  - Nasal septum deviation [Recovering/Resolving]
  - Dyspnoea [Recovering/Resolving]
  - Anosmia [Recovering/Resolving]
